FAERS Safety Report 6041542-5 (Version None)
Quarter: 2009Q1

REPORT INFORMATION
  Report Type: 
  Country: None (occurrence: None)
  Receive Date: 20090116
  Receipt Date: 20081023
  Transmission Date: 20090719
  Serious: No
  Sender: FDA-Public Use
  Company Number: US-BRISTOL-MYERS SQUIBB COMPANY-14380612

PATIENT
  Age: 9 Year
  Sex: Female

DRUGS (1)
  1. ABILIFY [Suspect]
     Dosage: STARTED WITH 2.5MG, INCREASED TO 5MG IN ONE WEEK.

REACTIONS (3)
  - CHILLS [None]
  - DROOLING [None]
  - STARING [None]
